FAERS Safety Report 7052516-X (Version None)
Quarter: 2010Q4

REPORT INFORMATION
  Report Type: 
  Country: None (occurrence: None)
  Receive Date: 20101019
  Receipt Date: 20101011
  Transmission Date: 20110411
  Serious: Yes (Other)
  Sender: FDA-Public Use
  Company Number: DE-PFIZER INC-2010129168

PATIENT
  Age: 48 Year
  Sex: Male

DRUGS (1)
  1. SORTIS [Suspect]
     Dosage: 40 MG, UNK

REACTIONS (2)
  - MUSCLE TIGHTNESS [None]
  - MYOSCLEROSIS [None]
